FAERS Safety Report 5484278-1 (Version None)
Quarter: 2007Q4

REPORT INFORMATION
  Report Type: 
  Country: None (occurrence: None)
  Receive Date: 20071010
  Receipt Date: 20071002
  Transmission Date: 20080405
  Serious: Yes (Other)
  Sender: FDA-Public Use
  Company Number: FABR-12186

PATIENT
  Age: 34 Year
  Sex: Male
  Weight: 50.8029 kg

DRUGS (3)
  1. FABRAZYME [Suspect]
     Indication: FABRY'S DISEASE
     Dosage: 55 MG Q2WKS IV
     Route: 042
     Dates: start: 20070615
  2. TYLENOL. MFR: MCNEIL LABORATORIES, INCORPORATED [Concomitant]
  3. CLARITIN. MFR: SCHERING CORPORATION [Concomitant]

REACTIONS (3)
  - BLOOD PRESSURE FLUCTUATION [None]
  - INFUSION RELATED REACTION [None]
  - SWOLLEN TONGUE [None]
